FAERS Safety Report 4341479-3 (Version None)
Quarter: 2004Q2

REPORT INFORMATION
  Report Type: 
  Country: None (occurrence: None)
  Receive Date: 20040415
  Receipt Date: 20040402
  Transmission Date: 20050107
  Serious: Yes (Hospitalization)
  Sender: FDA-Public Use
  Company Number: 2004016767

PATIENT
  Sex: Male

DRUGS (2)
  1. CARDENALIN (DOXAZOSIN) [Suspect]
     Indication: HYPERTENSION
     Dosage: UNKNOWN (UNKNOWN), ORAL
     Route: 048
  2. CLINIDIPINE (CLINIDIPINE) [Concomitant]

REACTIONS (3)
  - ECZEMA [None]
  - GENERALISED ERYTHEMA [None]
  - OEDEMA [None]
